FAERS Safety Report 4600071-3 (Version None)
Quarter: 2005Q1

REPORT INFORMATION
  Report Type: 
  Country: None (occurrence: None)
  Receive Date: 20050307
  Receipt Date: 20050223
  Transmission Date: 20050727
  Serious: Yes (Hospitalization)
  Sender: FDA-Public Use
  Company Number: FR-JNJFOC-20050300440

PATIENT
  Age: 65 Year
  Sex: Female

DRUGS (13)
  1. IXPRIM [Suspect]
     Indication: ARTHROPATHY
     Route: 049
  2. LANZOR [Suspect]
     Indication: DRUG USE FOR UNKNOWN INDICATION
     Route: 049
  3. TERCIAN [Suspect]
     Indication: DRUG USE FOR UNKNOWN INDICATION
     Route: 049
  4. LIPANTHYL [Suspect]
     Route: 049
  5. CELEBREX [Suspect]
     Indication: ARTHROPATHY
     Route: 049
  6. ELISOR [Suspect]
     Route: 049
  7. TRINIPATCH [Concomitant]
     Route: 061
  8. ALDACTONE [Concomitant]
     Route: 049
  9. DIGOXIN [Concomitant]
     Route: 049
  10. GLUCOR [Concomitant]
     Route: 049
  11. ACTRAPID [Concomitant]
     Route: 058
  12. UMULINE [Concomitant]
     Route: 058
  13. STAGID [Concomitant]
     Route: 049

REACTIONS (5)
  - PHOTOSENSITIVITY REACTION [None]
  - PURPURA [None]
  - RASH ERYTHEMATOUS [None]
  - RASH PAPULAR [None]
  - RASH VESICULAR [None]
